FAERS Safety Report 16240085 (Version 1)
Quarter: 2019Q2

REPORT INFORMATION
  Report Type: Spontaneous
  Country: US (occurrence: US)
  Receive Date: 20190425
  Receipt Date: 20190425
  Transmission Date: 20190711
  Serious: No
  Sender: FDA-Public Use
  Company Number: US-ALLERGAN-1904217US

PATIENT
  Age: 7 Year
  Sex: Male

DRUGS (2)
  1. TRIPTORELIN PAMOATE - BP [Suspect]
     Active Substance: TRIPTORELIN PAMOATE
     Indication: PRECOCIOUS PUBERTY
     Dosage: UNK, SINGLE
     Route: 030
     Dates: start: 20181218, end: 20181218
  2. TRIPTORELIN PAMOATE - BP [Suspect]
     Active Substance: TRIPTORELIN PAMOATE
     Dosage: 22.5 MG, SINGLE
     Route: 030
     Dates: start: 20180614, end: 20180614

REACTIONS (6)
  - Incorrect dose administered [Unknown]
  - Blood testosterone increased [Recovered/Resolved]
  - Therapeutic product effect decreased [Unknown]
  - Product colour issue [Unknown]
  - Device defective [Unknown]
  - Blood luteinising hormone increased [Recovered/Resolved]

NARRATIVE: CASE EVENT DATE: 20181123
